FAERS Safety Report 15960650 (Version 1)
Quarter: 2019Q1

REPORT INFORMATION
  Report Type: Spontaneous
  Country: IT (occurrence: IT)
  Receive Date: 20190214
  Receipt Date: 20190214
  Transmission Date: 20190417
  Serious: Yes (Other)
  Sender: FDA-Public Use
  Company Number: IT-SUN PHARMACEUTICAL INDUSTRIES LTD-2019RR-199041

PATIENT
  Age: 21 Year
  Sex: Female

DRUGS (2)
  1. EN [Suspect]
     Active Substance: DELORAZEPAM
     Indication: MENTAL DISORDER
     Dosage: IN TOTAL
     Route: 048
     Dates: start: 20190105, end: 20190105
  2. SERTRALINE [Suspect]
     Active Substance: SERTRALINE HYDROCHLORIDE
     Indication: MENTAL DISORDER
     Dosage: IN TOTAL
     Route: 048
     Dates: start: 20190105, end: 20190105

REACTIONS (2)
  - Sopor [Recovering/Resolving]
  - Hypoaesthesia [Recovering/Resolving]

NARRATIVE: CASE EVENT DATE: 20190105
